FAERS Safety Report 24154086 (Version 1)
Quarter: 2024Q3

REPORT INFORMATION
  Report Type: Spontaneous
  Country: US (occurrence: US)
  Receive Date: 20240730
  Receipt Date: 20240730
  Transmission Date: 20241017
  Serious: No
  Sender: NOVARTIS
  Company Number: US-002147023-NVSC2024US155174

PATIENT
  Sex: Female

DRUGS (1)
  1. COSENTYX [Suspect]
     Active Substance: SECUKINUMAB
     Indication: Product used for unknown indication
     Dosage: UNK
     Route: 065

REACTIONS (7)
  - Heavy menstrual bleeding [Unknown]
  - Nasal congestion [Unknown]
  - Chest discomfort [Unknown]
  - Blister [Unknown]
  - Rash [Unknown]
  - Polymenorrhoea [Unknown]
  - Diarrhoea [Unknown]
